FAERS Safety Report 5165806-2 (Version None)
Quarter: 2006Q4

REPORT INFORMATION
  Report Type: 
  Country: None (occurrence: None)
  Receive Date: 20061128
  Receipt Date: 20061113
  Transmission Date: 20070319
  Serious: Yes (Hospitalization, Other)
  Sender: FDA-Public Use
  Company Number: 2006BL005873

PATIENT
  Age: 44 Year
  Sex: Female

DRUGS (3)
  1. PREDNISOLONE SODIUM PHOSPHATE [Suspect]
     Indication: ANAEMIA HAEMOLYTIC AUTOIMMUNE
     Dosage: 30 MILLIGRAMS; DAILY; ORAL
     Route: 048
  2. NEOLAB COTRIMOXAZOLE [Concomitant]
  3. PREDNISOLONE [Concomitant]

REACTIONS (3)
  - BRAIN ABSCESS [None]
  - NOCARDIOSIS [None]
  - PLEURAL EFFUSION [None]
